FAERS Safety Report 15290748 (Version 1)
Quarter: 2018Q3

REPORT INFORMATION
  Report Type: Spontaneous
  Country: SE (occurrence: SE)
  Receive Date: 20180817
  Receipt Date: 20180817
  Transmission Date: 20181010
  Serious: Yes (Disabling)
  Sender: FDA-Public Use
  Company Number: SE-TEVA-2018-SE-943212

PATIENT
  Sex: Male
  Weight: 85 kg

DRUGS (9)
  1. TRAMADOL. [Concomitant]
     Active Substance: TRAMADOL
  2. OMEPRAZOLE. [Concomitant]
     Active Substance: OMEPRAZOLE
  3. PREDNISOLON PFIZER [Concomitant]
     Active Substance: PREDNISOLONE
  4. CYMBALTA [Concomitant]
     Active Substance: DULOXETINE HYDROCHLORIDE
  5. BEVIPLEX FORTE [Concomitant]
  6. CALCICHEW?D3 CITRON [Concomitant]
  7. LOSARTAN. [Suspect]
     Active Substance: LOSARTAN
     Indication: HYPERTENSION
     Dosage: 100 MILLIGRAM DAILY; 1X50 MG MORGON O KV?LL
     Route: 061
  8. XARELTO [Concomitant]
     Active Substance: RIVAROXABAN
  9. NEBIDO [Concomitant]
     Active Substance: TESTOSTERONE UNDECANOATE

REACTIONS (3)
  - Abnormal faeces [Not Recovered/Not Resolved]
  - Urine odour abnormal [Not Recovered/Not Resolved]
  - Skin odour abnormal [Not Recovered/Not Resolved]
